FAERS Safety Report 8974049 (Version 1)
Quarter: 2012Q4

REPORT INFORMATION
  Report Type: 
  Country: US (occurrence: US)
  Receive Date: 20121218
  Receipt Date: 20121218
  Transmission Date: 20130627
  Serious: No
  Sender: FDA-Public Use
  Company Number: US-BRISTOL-MYERS SQUIBB COMPANY-16400889

PATIENT
  Age: 49 Year
  Sex: Female

DRUGS (1)
  1. ABILIFY [Suspect]
     Dosage: Increased to 5mg to 10mg,15,30mg
Restarted:2008; discontinued in 2011
     Dates: start: 2007

REACTIONS (5)
  - Blood triglycerides increased [Unknown]
  - Low density lipoprotein increased [Unknown]
  - High density lipoprotein increased [Unknown]
  - Blood glucose increased [Unknown]
  - Blood cholesterol increased [Unknown]
